FAERS Safety Report 8804773 (Version 1)
Quarter: 2012Q4

REPORT INFORMATION
  Report Type: 
  Country: US (occurrence: US)
  Receive Date: 20120924
  Receipt Date: 20120924
  Transmission Date: 20130627
  Serious: No
  Sender: FDA-Public Use
  Company Number: US-009507513-1208USA010820

PATIENT
  Age: 56 Year
  Sex: Male
  Weight: 73.47 kg

DRUGS (6)
  1. VICTRELIS [Suspect]
     Dosage: 800 mg, tid
     Route: 048
  2. PEGINTRON [Suspect]
     Dosage: 120 Microgram, UNK
     Route: 058
  3. ATACAND [Suspect]
     Dosage: 4 mg, UNK
     Route: 048
  4. RIBASPHERE [Concomitant]
     Dosage: 200 mg, UNK
     Route: 048
  5. HYDROXYZINE HYDROCHLORIDE [Concomitant]
     Dosage: 25 mg, UNK
     Route: 048
  6. TYLENOL [Concomitant]
     Dosage: 325 mg, UNK
     Route: 048

REACTIONS (2)
  - Anaemia [Unknown]
  - Capsule physical issue [Unknown]
